FAERS Safety Report 20152814 (Version 1)
Quarter: 2021Q4

REPORT INFORMATION
  Report Type: Spontaneous
  Country: US (occurrence: None)
  Receive Date: 20211206
  Receipt Date: 20211206
  Transmission Date: 20220303
  Serious: Yes (Other)
  Sender: FDA-Public Use
  Company Number: None

PATIENT
  Age: 70 Year
  Sex: Female
  Weight: 75.15 kg

DRUGS (11)
  1. CAPECITABINE [Suspect]
     Active Substance: CAPECITABINE
     Indication: Breast cancer female
     Dosage: FREQUENCY : DAILY;?
     Route: 048
     Dates: end: 20211206
  2. ANASTROZOLE [Concomitant]
     Active Substance: ANASTROZOLE
  3. Ascorbic Acid 1000mg [Concomitant]
  4. Omega 3 1000mg [Concomitant]
  5. Tukysa 150mg [Concomitant]
     Dates: end: 20210123
  6. Dexamethasone 1mg [Concomitant]
  7. Advil 200mg [Concomitant]
  8. Norco 5-325mg [Concomitant]
  9. ONDANSETRON [Concomitant]
     Active Substance: ONDANSETRON
  10. Nerlynx 40mg [Concomitant]
     Dates: end: 20210908
  11. LOPERAMIDE [Concomitant]
     Active Substance: LOPERAMIDE

REACTIONS (1)
  - Disease progression [None]

NARRATIVE: CASE EVENT DATE: 20211206
